FAERS Safety Report 6645563-0 (Version None)
Quarter: 2010Q1

REPORT INFORMATION
  Report Type: 
  Country: None (occurrence: None)
  Receive Date: 20100323
  Receipt Date: 20100224
  Transmission Date: 20100710
  Serious: No
  Sender: FDA-Public Use
  Company Number: 2009BI029752

PATIENT
  Age: 19 Year
  Sex: Female

DRUGS (1)
  1. TYSABRI [Suspect]
     Indication: MULTIPLE SCLEROSIS
     Route: 042
     Dates: start: 20090508

REACTIONS (5)
  - ARTHRALGIA [None]
  - HEADACHE [None]
  - MEMORY IMPAIRMENT [None]
  - NECK PAIN [None]
  - URINARY INCONTINENCE [None]
